FAERS Safety Report 24855714 (Version 1)
Quarter: 2025Q1

REPORT INFORMATION
  Report Type: Spontaneous
  Country: FR (occurrence: FR)
  Receive Date: 20250117
  Receipt Date: 20250117
  Transmission Date: 20250409
  Serious: Yes (Other)
  Sender: NOVARTIS
  Company Number: None

PATIENT
  Age: 58 Year
  Sex: Male
  Weight: 64.5 kg

DRUGS (4)
  1. NEORAL [Suspect]
     Active Substance: CYCLOSPORINE
     Indication: Prophylaxis against transplant rejection
     Dosage: 100 MG, QD (SOLUTION BUVABLE EN FLACON)
     Route: 048
     Dates: start: 20241003, end: 20250102
  2. NEORAL [Suspect]
     Active Substance: CYCLOSPORINE
  3. TELMISARTAN [Suspect]
     Active Substance: TELMISARTAN
     Indication: Hypertension
     Dosage: 40 MG, QD (COMPRIM?)
     Route: 048
     Dates: start: 20241022
  4. RISPERDAL [Suspect]
     Active Substance: RISPERIDONE
     Indication: Behaviour disorder
     Dosage: 1 MG, QD (3.4 MONTHS)
     Route: 048
     Dates: start: 20240924, end: 20250103

REACTIONS (1)
  - Pancytopenia [Not Recovered/Not Resolved]

NARRATIVE: CASE EVENT DATE: 20241201
